FAERS Safety Report 24683333 (Version 1)
Quarter: 2024Q4

REPORT INFORMATION
  Report Type: Spontaneous
  Country: CN (occurrence: CN)
  Receive Date: 20241201
  Receipt Date: 20241201
  Transmission Date: 20250115
  Serious: Yes (Other)
  Sender: BEIGENE
  Company Number: CN-BEIGENE-BGN-2024-019077

PATIENT

DRUGS (4)
  1. TISLELIZUMAB [Suspect]
     Active Substance: TISLELIZUMAB
     Indication: Small intestine carcinoma
     Dosage: 200 MILLIGRAM
     Dates: start: 20240907
  2. PACLITAXEL [Suspect]
     Active Substance: PACLITAXEL
     Indication: Small intestine carcinoma
     Dosage: 200 MILLIGRAM
     Route: 041
     Dates: start: 20240903, end: 20240905
  3. PACLITAXEL [Suspect]
     Active Substance: PACLITAXEL
     Dosage: 200 MILLIGRAM
     Route: 041
     Dates: start: 20240911, end: 20240913
  4. CARBOPLATIN [Suspect]
     Active Substance: CARBOPLATIN
     Indication: Small intestine carcinoma
     Dosage: 1.5 GRAM, BID
     Route: 048
     Dates: start: 20240904, end: 20240916

REACTIONS (1)
  - Myelosuppression [Recovering/Resolving]

NARRATIVE: CASE EVENT DATE: 20240924
